FAERS Safety Report 7202776-7 (Version None)
Quarter: 2010Q4

REPORT INFORMATION
  Report Type: 
  Country: None (occurrence: None)
  Receive Date: 20101229
  Receipt Date: 20101222
  Transmission Date: 20110411
  Serious: Yes (Other)
  Sender: FDA-Public Use
  Company Number: US-JNJFOC-20101207790

PATIENT
  Sex: Female
  Weight: 70.76 kg

DRUGS (3)
  1. REMICADE [Suspect]
     Indication: CROHN'S DISEASE
     Route: 042
  2. DIOVAN [Concomitant]
     Indication: BLOOD PRESSURE
     Route: 048
  3. PROTONIX [Concomitant]
     Indication: GASTRIC DISORDER
     Dosage: 20 MG 1-2 TIMES A DAY
     Route: 049

REACTIONS (10)
  - ARTHRALGIA [None]
  - BACK PAIN [None]
  - DYSPNOEA [None]
  - HEADACHE [None]
  - HYPERTENSION [None]
  - INFUSION RELATED REACTION [None]
  - MOVEMENT DISORDER [None]
  - MUSCLE SPASMS [None]
  - NECK PAIN [None]
  - PAIN IN EXTREMITY [None]
